FAERS Safety Report 17675980 (Version 1)
Quarter: 2020Q2

REPORT INFORMATION
  Report Type: Spontaneous
  Country: DE (occurrence: DE)
  Receive Date: 20200416
  Receipt Date: 20200416
  Transmission Date: 20200714
  Serious: Yes (Hospitalization)
  Sender: FDA-Public Use
  Company Number: DE-TEVA-2018-DE-903171

PATIENT
  Age: 71 Year
  Sex: Male
  Weight: 84 kg

DRUGS (18)
  1. METOPROLOL. [Suspect]
     Active Substance: METOPROLOL
     Dosage: 1-0-0-0
     Route: 048
  2. AMLODIPIN [Concomitant]
     Active Substance: AMLODIPINE BESYLATE
     Dosage: 0-0-0-1
     Route: 048
  3. KALIUMCHLORID [Concomitant]
     Active Substance: POTASSIUM CHLORIDE
     Route: 048
  4. CETIRIZIN [Concomitant]
     Active Substance: CETIRIZINE HYDROCHLORIDE
     Dosage: 0-0-0-1
     Route: 048
  5. DOXAZOSIN [Concomitant]
     Active Substance: DOXAZOSIN MESYLATE
     Dosage: 1-1-1-1
     Route: 048
  6. SEVELAMER [Concomitant]
     Active Substance: SEVELAMER
     Dosage: 2-3-2-0
     Route: 048
  7. ACETYLSALICYLSAEURE [Concomitant]
     Active Substance: ASPIRIN
     Dosage: 0-0.5-0-0
     Route: 048
  8. LOSARTAN. [Suspect]
     Active Substance: LOSARTAN
     Dosage: 1-1-1-0
     Route: 048
  9. METAMIZOL [Concomitant]
     Active Substance: METAMIZOLE SODIUM
     Route: 048
  10. EPOETIN ALFA [Concomitant]
     Active Substance: ERYTHROPOIETIN
     Dosage: 4000 IE, 1-0-0-0
     Route: 048
  11. INSULIN HUMAN [Concomitant]
     Active Substance: INSULIN HUMAN
     Route: 058
  12. TAMSULOSIN [Concomitant]
     Active Substance: TAMSULOSIN
     Dosage: 1-0-0-0
     Route: 048
  13. LEVODOPA/BENSERAZID [Concomitant]
     Active Substance: BENSERAZIDE\LEVODOPA
     Dosage: 0-0-0.5-0
     Route: 048
  14. OMEPRAZOL [Concomitant]
     Active Substance: OMEPRAZOLE
     Dosage: 1-0-0-0
     Route: 048
  15. FUROSEMID [Concomitant]
     Active Substance: FUROSEMIDE
     Dosage: 0.5-0.5-0-0
     Route: 048
  16. NALOXONE [Suspect]
     Active Substance: NALOXONE
     Dosage: 50|4 MG, 1-0-1-0
     Route: 048
  17. NIFEDIPINE. [Suspect]
     Active Substance: NIFEDIPINE
     Route: 065
  18. ISOPHANE INSULIN [Concomitant]
     Active Substance: INSULIN NOS
     Route: 058

REACTIONS (1)
  - Bradycardia [Unknown]

NARRATIVE: CASE EVENT DATE: 20151130
